FAERS Safety Report 9097929 (Version 3)
Quarter: 2013Q2

REPORT INFORMATION
  Report Type: Spontaneous
  Country: US (occurrence: US)
  Receive Date: 20130212
  Receipt Date: 20130524
  Transmission Date: 20140414
  Serious: Yes (Other)
  Sender: FDA-Public Use
  Company Number: US-PFIZER INC-2013051702

PATIENT
  Age: 49 Year
  Sex: Male

DRUGS (3)
  1. INLYTA [Suspect]
     Indication: RENAL CANCER
     Dosage: 3 MG, 2X/DAY
     Route: 048
     Dates: start: 201205, end: 201212
  2. INLYTA [Suspect]
     Dosage: 3 MG, 2X/DAY
     Route: 048
     Dates: start: 201207
  3. INLYTA [Suspect]
     Dosage: 3 MG, 1X/DAY
     Route: 048
     Dates: start: 201212

REACTIONS (6)
  - Deafness [Not Recovered/Not Resolved]
  - Impaired healing [Recovering/Resolving]
  - Angiopathy [Not Recovered/Not Resolved]
  - Cataract [Unknown]
  - Diarrhoea [Unknown]
  - Fatigue [Unknown]
